FAERS Safety Report 16367216 (Version 4)
Quarter: 2019Q3

REPORT INFORMATION
  Report Type: Report from Study
  Country: None (occurrence: SK)
  Receive Date: 20190529
  Receipt Date: 20190819
  Transmission Date: 20191004
  Serious: Yes (Life-Threatening, Hospitalization, Other)
  Sender: FDA-Public Use
  Company Number: SK-ABBVIE-19P-260-2793051-00

PATIENT
  Age: 72 Year
  Sex: Female
  Weight: 45 kg

DRUGS (8)
  1. RILMEX [Concomitant]
     Indication: HYPERTENSION
     Route: 048
     Dates: start: 2014
  2. SINDRANOL [Concomitant]
     Indication: RESTLESS LEGS SYNDROME
     Route: 048
     Dates: start: 2017
  3. METAMIZOLE [Concomitant]
     Active Substance: METAMIZOLE
     Indication: GASTROSTOMY
  4. PK MERZ [Concomitant]
     Active Substance: AMANTADINE SULFATE
     Indication: DYSKINESIA
  5. METAMIZOLE [Concomitant]
     Active Substance: METAMIZOLE
     Indication: PROCEDURAL PAIN
     Route: 042
     Dates: start: 20190515
  6. DUODOPA [Suspect]
     Active Substance: CARBIDOPA\LEVODOPA
     Indication: PARKINSON^S DISEASE
     Route: 050
     Dates: start: 20190515, end: 20190521
  7. PK MERZ [Concomitant]
     Active Substance: AMANTADINE SULFATE
     Indication: PARKINSON^S DISEASE
     Route: 048
     Dates: start: 2016
  8. SINDRANOL [Concomitant]
     Indication: PARKINSON^S DISEASE
     Route: 048
     Dates: start: 2015, end: 20190512

REACTIONS (1)
  - Pneumoperitoneum [Recovered/Resolved]

NARRATIVE: CASE EVENT DATE: 20190521
